FAERS Safety Report 8849815 (Version 1)
Quarter: 2012Q4

REPORT INFORMATION
  Report Type: 
  Country: US (occurrence: US)
  Receive Date: 20121019
  Receipt Date: 20121019
  Transmission Date: 20130627
  Serious: No
  Sender: FDA-Public Use
  Company Number: US-BAYER-2012-107565

PATIENT
  Age: 46 Year
  Sex: Female

DRUGS (4)
  1. BETASERON [Suspect]
     Indication: MULTIPLE SCLEROSIS
     Dosage: 0.3 mg, QOD
     Route: 058
     Dates: start: 20120919
  2. CYMBALTA [Concomitant]
  3. PROVIGIL [Concomitant]
  4. BACLOFEN [Concomitant]

REACTIONS (1)
  - Depression [Not Recovered/Not Resolved]
